FAERS Safety Report 23243209 (Version 2)
Quarter: 2023Q4

REPORT INFORMATION
  Report Type: Report from Study
  Country: US (occurrence: US)
  Receive Date: 20231130
  Receipt Date: 20231212
  Transmission Date: 20240110
  Serious: Yes (Other)
  Sender: FDA-Public Use
  Company Number: US-ALXN-A202308653AA

PATIENT
  Age: 55 Year
  Sex: Female

DRUGS (3)
  1. ULTOMIRIS [Suspect]
     Active Substance: RAVULIZUMAB-CWVZ
     Indication: Myasthenia gravis
     Dosage: UNK
     Route: 042
     Dates: start: 20230627
  2. BENADRYL [Concomitant]
     Active Substance: DIPHENHYDRAMINE HYDROCHLORIDE
     Indication: Urticaria
     Dosage: UNK
     Route: 065
  3. BENADRYL [Concomitant]
     Active Substance: DIPHENHYDRAMINE HYDROCHLORIDE
     Indication: Pruritus

REACTIONS (14)
  - Psoriatic arthropathy [Unknown]
  - Pain in extremity [Unknown]
  - Skin wound [Unknown]
  - Crying [Unknown]
  - Pain [Recovering/Resolving]
  - Joint stiffness [Unknown]
  - Dysstasia [Unknown]
  - Muscle disorder [Unknown]
  - Muscle tightness [Unknown]
  - Dysphagia [Recovering/Resolving]
  - Limb injury [Unknown]
  - Arthralgia [Unknown]
  - Pruritus [Recovering/Resolving]
  - Urticaria [Recovered/Resolved]

NARRATIVE: CASE EVENT DATE: 20230601
